FAERS Safety Report 8962939 (Version 1)
Quarter: 2012Q4

REPORT INFORMATION
  Report Type: 
  Country: DE (occurrence: DE)
  Receive Date: 20121213
  Receipt Date: 20121213
  Transmission Date: 20130627
  Serious: Yes (Other)
  Sender: FDA-Public Use
  Company Number: DE-BRISTOL-MYERS SQUIBB COMPANY-17176728

PATIENT
  Age: 48 Year
  Sex: Male

DRUGS (7)
  1. DIDANOSINE [Suspect]
     Indication: HIV INFECTION
  2. STAVUDINE [Suspect]
     Indication: HIV INFECTION
  3. ATAZANAVIR [Suspect]
     Indication: HIV INFECTION
     Dates: start: 2001
  4. ZALCITABINE [Suspect]
     Indication: HIV INFECTION
  5. RITONAVIR [Suspect]
     Indication: HIV INFECTION
     Dates: start: 2001
  6. TENOFOVIR [Suspect]
     Indication: HIV INFECTION
     Dates: start: 2001
  7. NEVIRAPINE [Suspect]
     Indication: HIV INFECTION
     Dates: start: 2001

REACTIONS (1)
  - Neuropathy peripheral [Recovering/Resolving]
